FAERS Safety Report 8616005-0 (Version None)
Quarter: 2012Q3

REPORT INFORMATION
  Report Type: 
  Country: None (occurrence: None)
  Receive Date: 20120815
  Receipt Date: 20120815
  Transmission Date: 20120928
  Serious: Yes (Hospitalization)
  Sender: FDA-Public Use
  Company Number: None

PATIENT
  Age: 60 Year
  Sex: Male
  Weight: 52.6173 kg

DRUGS (2)
  1. PHENYTOIN SODIUM CAP [Suspect]
     Indication: CONVULSION
     Dosage: 100MG BID PO
     Route: 048
  2. PHENYTOIN SODIUM CAP [Suspect]
     Indication: CONVULSION
     Dosage: 200MG QHS PO
     Route: 048

REACTIONS (2)
  - CONVULSION [None]
  - ANTICONVULSANT DRUG LEVEL ABOVE THERAPEUTIC [None]
